FAERS Safety Report 14624580 (Version 2)
Quarter: 2018Q1

REPORT INFORMATION
  Report Type: Spontaneous
  Country: JP (occurrence: JP)
  Receive Date: 20180312
  Receipt Date: 20180327
  Transmission Date: 20180509
  Serious: Yes (Death, Other)
  Sender: FDA-Public Use
  Company Number: PHJP2018JP005673

PATIENT
  Age: 71 Year
  Sex: Female

DRUGS (1)
  1. FEMARA [Suspect]
     Active Substance: LETROZOLE
     Indication: BREAST CANCER
     Dosage: UNK
     Route: 048
     Dates: start: 201610

REACTIONS (6)
  - Tumour marker increased [Unknown]
  - Breast cancer [Fatal]
  - Malignant neoplasm progression [Fatal]
  - Quadriplegia [Unknown]
  - Liver disorder [Unknown]
  - Concomitant disease aggravated [Unknown]
